FAERS Safety Report 9449643 (Version 7)
Quarter: 2013Q4

REPORT INFORMATION
  Report Type: Spontaneous
  Country: US (occurrence: US)
  Receive Date: 20130809
  Receipt Date: 20131121
  Transmission Date: 20140711
  Serious: Yes (Other)
  Sender: FDA-Public Use
  Company Number: US-PFIZER INC-2013228801

PATIENT
  Age: 75 Year
  Sex: Male

DRUGS (11)
  1. SUTENT [Suspect]
     Dosage: 50 MG, DAILY
     Dates: start: 20130712
  2. SUTENT [Suspect]
     Dosage: UNK
     Dates: start: 20131004
  3. SUTENT [Suspect]
     Dosage: 37.5 MG, UNK
  4. WELLBUTRIN [Concomitant]
     Dosage: UNK
  5. PLAVIX [Concomitant]
     Dosage: UNK
  6. CARVEDILOL [Concomitant]
     Dosage: UNK
  7. DEXILANT [Concomitant]
     Dosage: UNK
  8. HYOSCYAMINE [Concomitant]
     Dosage: UNK
  9. PERCOCET [Concomitant]
     Dosage: UNK
  10. ZOLPIDEM [Concomitant]
     Dosage: UNK
  11. TYLENOL [Concomitant]
     Dosage: UNK

REACTIONS (25)
  - Haemorrhage [Unknown]
  - Weight decreased [Recovering/Resolving]
  - Decreased appetite [Recovered/Resolved]
  - Diarrhoea [Unknown]
  - Oral pain [Unknown]
  - Headache [Unknown]
  - Medical device complication [Unknown]
  - Joint effusion [Unknown]
  - Arthralgia [Unknown]
  - Glossodynia [Not Recovered/Not Resolved]
  - Dysgeusia [Recovered/Resolved]
  - Joint swelling [Unknown]
  - Burning sensation [Not Recovered/Not Resolved]
  - Palmar-plantar erythrodysaesthesia syndrome [Not Recovered/Not Resolved]
  - Pruritus [Unknown]
  - Pruritus generalised [Unknown]
  - Scratch [Unknown]
  - Pain in extremity [Not Recovered/Not Resolved]
  - Skin exfoliation [Not Recovered/Not Resolved]
  - Arthralgia [Unknown]
  - Pain in extremity [Unknown]
  - Nodule [Unknown]
  - Pain [Unknown]
  - Scar [Unknown]
  - Quality of life decreased [Unknown]
